FAERS Safety Report 7628765-6 (Version None)
Quarter: 2011Q3

REPORT INFORMATION
  Report Type: 
  Country: None (occurrence: None)
  Receive Date: 20110722
  Receipt Date: 20110712
  Transmission Date: 20111222
  Serious: Yes (Other)
  Sender: FDA-Public Use
  Company Number: US-BAYER-2010-002181

PATIENT
  Age: 30 Year
  Sex: Female
  Weight: 102 kg

DRUGS (7)
  1. PREVACID [Concomitant]
     Dosage: UNK UNK, PRN
  2. YAZ [Suspect]
     Indication: PRODUCT USED FOR UNKNOWN INDICATION
     Dosage: UNK
     Dates: start: 20061101, end: 20070401
  3. YASMIN [Suspect]
  4. DARVOCET [Concomitant]
  5. YAZ [Suspect]
     Dosage: UNK
     Dates: start: 20070601
  6. DARVOCET-N 50 [Concomitant]
     Dosage: UNK UNK, PRN
  7. POTASSIUM [Concomitant]

REACTIONS (3)
  - CHOLELITHIASIS [None]
  - CHOLECYSTITIS CHRONIC [None]
  - GALLBLADDER INJURY [None]
